FAERS Safety Report 12273117 (Version 2)
Quarter: 2016Q2

REPORT INFORMATION
  Report Type: Spontaneous
  Country: CY (occurrence: CY)
  Receive Date: 20160415
  Receipt Date: 20160623
  Transmission Date: 20160815
  Serious: Yes (Other)
  Sender: FDA-Public Use
  Company Number: CY-AMGEN-CYPSP2016045277

PATIENT
  Age: 71 Year
  Sex: Female
  Weight: 57.3 kg

DRUGS (2)
  1. LIVIAL [Concomitant]
     Active Substance: TIBOLONE
     Dosage: QD
  2. PROLIA [Suspect]
     Active Substance: DENOSUMAB
     Indication: OSTEOPOROSIS
     Dosage: UNK, Q6MO
     Route: 058
     Dates: start: 20121026, end: 20150623

REACTIONS (1)
  - Spinal fracture [Recovering/Resolving]
